FAERS Safety Report 21556091 (Version 1)
Quarter: 2022Q4

REPORT INFORMATION
  Report Type: Report from Study
  Country: BR (occurrence: BR)
  Receive Date: 20221104
  Receipt Date: 20221104
  Transmission Date: 20230113
  Serious: Yes (Other)
  Sender: FDA-Public Use
  Company Number: BR-JNJFOC-20221059378

PATIENT
  Sex: Female
  Weight: 56 kg

DRUGS (1)
  1. INFLIXIMAB [Suspect]
     Active Substance: INFLIXIMAB
     Indication: Crohn^s disease
     Dosage: TREATMENT START DATE: 2011 OR 2012; TREATMENT END/ DROP-OUT DATE: 2011 OR 2012?DOSE: 3 OR 4 BOTTLES
     Route: 041

REACTIONS (6)
  - Loss of consciousness [Unknown]
  - Infusion related reaction [Unknown]
  - Erythema [Unknown]
  - Throat tightness [Unknown]
  - Dyspnoea [Unknown]
  - Pruritus [Unknown]
